FAERS Safety Report 18726794 (Version 1)
Quarter: 2021Q1

REPORT INFORMATION
  Report Type: Spontaneous
  Country: US (occurrence: US)
  Receive Date: 20210111
  Receipt Date: 20210111
  Transmission Date: 20210419
  Serious: No
  Sender: FDA-Public Use
  Company Number: US-PFIZER INC-2020443451

PATIENT
  Age: 64 Year
  Sex: Female

DRUGS (5)
  1. INLYTA [Suspect]
     Active Substance: AXITINIB
     Dosage: 3 MG, 2X/DAY (LOWERED TO 3MG TWICE DAILY)
  2. INLYTA [Suspect]
     Active Substance: AXITINIB
     Dosage: 5 MG
     Dates: start: 20201102
  3. INLYTA [Suspect]
     Active Substance: AXITINIB
     Dosage: 3 MG, 1X/DAY (HAD TO GO DOWN TO ONCE DAILY)
  4. INLYTA [Suspect]
     Active Substance: AXITINIB
     Dosage: 5 MG, 2X/DAY (BACK UP TO TWICE DAILY)
  5. INLYTA [Suspect]
     Active Substance: AXITINIB
     Dosage: 5 MG, 2X/DAY
     Route: 048
     Dates: start: 20201101

REACTIONS (3)
  - Skin irritation [Recovered/Resolved]
  - Blood pressure increased [Recovered/Resolved]
  - Stomatitis [Unknown]

NARRATIVE: CASE EVENT DATE: 2020
